FAERS Safety Report 14033934 (Version 1)
Quarter: 2017Q4

REPORT INFORMATION
  Report Type: Spontaneous
  Country: FR (occurrence: FR)
  Receive Date: 20171003
  Receipt Date: 20171003
  Transmission Date: 20180321
  Serious: Yes (Other)
  Sender: FDA-Public Use
  Company Number: FR-MERCK KGAA-2028597

PATIENT
  Age: 53 Year
  Sex: Female

DRUGS (1)
  1. NOVOTHYROX [Suspect]
     Active Substance: LEVOTHYROXINE SODIUM
     Indication: HYPOTHYROIDISM
     Dates: start: 201706, end: 201708

REACTIONS (12)
  - Decreased appetite [Unknown]
  - Somnolence [Unknown]
  - Blood thyroid stimulating hormone [Unknown]
  - Eye pain [Unknown]
  - Constipation [Unknown]
  - Headache [Unknown]
  - Gastrointestinal disorder [Unknown]
  - Alopecia [Unknown]
  - Nausea [Unknown]
  - Weight increased [Unknown]
  - Asthenia [Unknown]
  - Insomnia [Unknown]

NARRATIVE: CASE EVENT DATE: 201707
